FAERS Safety Report 8555987-2 (Version None)
Quarter: 2012Q3

REPORT INFORMATION
  Report Type: 
  Country: None (occurrence: None)
  Receive Date: 20120801
  Receipt Date: 20120109
  Transmission Date: 20120928
  Serious: Yes (Hospitalization)
  Sender: FDA-Public Use
  Company Number: HU-009507513-2011SP059354

PATIENT

DRUGS (6)
  1. BEBETINA [Concomitant]
     Dosage: UNK
  2. VICTRELIS [Suspect]
  3. REBETOL [Suspect]
     Dosage: UNK
  4. FAMOTIDINE [Concomitant]
     Dosage: UNK
  5. PEG-INTRON [Suspect]
     Indication: HEPATITIS C
     Dosage: 120 ?G, QW
     Route: 058
     Dates: start: 20111002
  6. ALLOPURINOL [Concomitant]

REACTIONS (3)
  - BACTERIAL INFECTION [None]
  - DYSPNOEA [None]
  - FEBRILE NEUTROPENIA [None]
